FAERS Safety Report 9621329 (Version 3)
Quarter: 2015Q2

REPORT INFORMATION
  Report Type: Report from Study
  Country: CA (occurrence: CA)
  Receive Date: 20131015
  Receipt Date: 20150511
  Transmission Date: 20150821
  Serious: Yes (Other)
  Sender: FDA-Public Use
  Company Number: CA-ROCHE-1287624

PATIENT
  Sex: Female

DRUGS (3)
  1. COPEGUS [Suspect]
     Active Substance: RIBAVIRIN
     Indication: CHRONIC HEPATITIS C
     Dosage: COPEGUS 35 TABLET/WEEK=1000 MG/DAY
     Route: 048
     Dates: start: 20130704, end: 20131003
  2. PEGASYS [Suspect]
     Active Substance: PEGINTERFERON ALFA-2A
     Indication: CHRONIC HEPATITIS C
     Dosage: 180 MCG/0.5 ML PRE-FILLED SYRINGE
     Route: 058
     Dates: start: 20130704, end: 20131003
  3. VICTRELIS [Suspect]
     Active Substance: BOCEPREVIR
     Indication: CHRONIC HEPATITIS C
     Dosage: START DATE:  WEEK 5 (NOS)
     Route: 048
     Dates: end: 20131003

REACTIONS (3)
  - Chest wall mass [Unknown]
  - Platelet count decreased [Unknown]
  - White blood cell count decreased [Unknown]
